FAERS Safety Report 14024926 (Version 2)
Quarter: 2017Q4

REPORT INFORMATION
  Report Type: Spontaneous
  Country: US (occurrence: US)
  Receive Date: 20170928
  Receipt Date: 20171016
  Transmission Date: 20180321
  Serious: No
  Sender: FDA-Public Use
  Company Number: US-SA-2017SA023103

PATIENT
  Age: 45 Year
  Sex: Female

DRUGS (12)
  1. VITAMIN B COMPLEX [Concomitant]
     Active Substance: CYANOCOBALAMIN\DEXPANTHENOL\NIACINAMIDE\PYRIDOXINE HYDROCHLORIDE\RIBOFLAVIN 5^-PHOSPHATE SODIUM\THIAMINE HYDROCHLORIDE\VITAMIN B COMPLEX
  2. VITAMIN D [Concomitant]
     Active Substance: CHOLECALCIFEROL
  3. TEMAZEPAM. [Concomitant]
     Active Substance: TEMAZEPAM
  4. TRINTELLIX [Concomitant]
     Active Substance: VORTIOXETINE HYDROBROMIDE
  5. XARELTO [Concomitant]
     Active Substance: RIVAROXABAN
  6. BACLOFEN. [Concomitant]
     Active Substance: BACLOFEN
  7. AUBAGIO [Suspect]
     Active Substance: TERIFLUNOMIDE
     Indication: MULTIPLE SCLEROSIS
     Route: 048
  8. MELATONIN [Concomitant]
     Active Substance: MELATONIN
  9. TOPIRAMATE. [Concomitant]
     Active Substance: TOPIRAMATE
  10. ALPRAZOLAM. [Concomitant]
     Active Substance: ALPRAZOLAM
  11. ATORVASTATIN CALCIUM. [Concomitant]
     Active Substance: ATORVASTATIN CALCIUM
  12. ESOMEPRAZOLE MAGNESIUM. [Concomitant]
     Active Substance: ESOMEPRAZOLE MAGNESIUM

REACTIONS (2)
  - Nausea [Unknown]
  - Weight decreased [Unknown]
